FAERS Safety Report 6107115-0 (Version None)
Quarter: 2009Q1

REPORT INFORMATION
  Report Type: 
  Country: None (occurrence: None)
  Receive Date: 20090309
  Receipt Date: 20090302
  Transmission Date: 20090719
  Serious: Yes (Death, Hospitalization, Other)
  Sender: FDA-Public Use
  Company Number: PHHY2009DE07630

PATIENT
  Sex: Male
  Weight: 80 kg

DRUGS (4)
  1. LOCOL [Suspect]
     Dosage: 20 MG, QD
     Route: 048
     Dates: start: 20080515, end: 20080518
  2. AVELOX [Suspect]
     Dosage: 400 MG, QD
     Route: 048
     Dates: start: 20080512, end: 20080516
  3. DYNACIL COMP [Suspect]
     Dosage: UNK
     Route: 048
     Dates: start: 20080512, end: 20080518
  4. PASPERTIN [Suspect]
     Dosage: 3X20 DROPS, 3 IN 1 DAY
     Route: 048
     Dates: start: 20080512, end: 20080521

REACTIONS (10)
  - ARRHYTHMIA [None]
  - ATRIAL FIBRILLATION [None]
  - BRADYARRHYTHMIA [None]
  - CARDIAC ARREST [None]
  - IMPLANTABLE DEFIBRILLATOR INSERTION [None]
  - LONG QT SYNDROME [None]
  - LOSS OF CONSCIOUSNESS [None]
  - PULSE ABSENT [None]
  - RESUSCITATION [None]
  - SYNCOPE [None]
